FAERS Safety Report 8709176 (Version 4)
Quarter: 2012Q4

REPORT INFORMATION
  Report Type: 
  Country: US (occurrence: US)
  Receive Date: 20120806
  Receipt Date: 20120917
  Transmission Date: 20130627
  Serious: Yes (Other)
  Sender: FDA-Public Use
  Company Number: US-BAYER-2012-076757

PATIENT
  Age: 76 Year
  Sex: Female
  Weight: 68.93 kg

DRUGS (3)
  1. NEXAVAR [Suspect]
     Indication: RENAL CELL CARCINOMA
     Dosage: 200 mg, BID
     Route: 048
     Dates: start: 20120728, end: 201208
  2. NEXAVAR [Suspect]
     Indication: RENAL CELL CARCINOMA
     Dosage: 400 mg in AM, 200 mg in pm
     Route: 048
     Dates: start: 201208
  3. NEXAVAR [Suspect]
     Indication: RENAL CELL CARCINOMA
     Dosage: 200 mg, BID
     Route: 048

REACTIONS (8)
  - Aphagia [None]
  - Nausea [Not Recovered/Not Resolved]
  - Vomiting [None]
  - Dizziness [Not Recovered/Not Resolved]
  - Flatulence [Not Recovered/Not Resolved]
  - Dyspepsia [Not Recovered/Not Resolved]
  - Diarrhoea [Recovering/Resolving]
  - Vomiting [Recovering/Resolving]
